FAERS Safety Report 17690659 (Version 2)
Quarter: 2020Q2

REPORT INFORMATION
  Report Type: Report from Study
  Country: US (occurrence: US)
  Receive Date: 20200421
  Receipt Date: 20200501
  Transmission Date: 20200714
  Serious: Yes (Hospitalization, Disabling)
  Sender: FDA-Public Use
  Company Number: US-ACTELION-A-US2019-192117

PATIENT
  Sex: Female

DRUGS (14)
  1. ROBINUL [Concomitant]
     Active Substance: GLYCOPYRROLATE
     Dosage: 0.5MG, TID
     Route: 048
     Dates: start: 20121109
  2. ALBUTEROL. [Concomitant]
     Active Substance: ALBUTEROL
     Dosage: 1 DOSE Q3H
     Dates: start: 20121109
  3. NAC [ACETYLCYSTEINE] [Concomitant]
     Active Substance: ACETYLCYSTEINE
     Dosage: 600 MG, QD
     Route: 048
     Dates: start: 20121109
  4. MIGLUSTAT. [Suspect]
     Active Substance: MIGLUSTAT
     Indication: LIPIDOSIS
     Dosage: 100 MG, QID
     Route: 048
     Dates: start: 20190513, end: 20190613
  5. CLOBAZAM. [Concomitant]
     Active Substance: CLOBAZAM
     Dosage: 1 DOSE, BID
     Dates: start: 20130305
  6. ZYRTEC [Concomitant]
     Active Substance: CETIRIZINE HYDROCHLORIDE
     Dosage: 1 MG/ML, 5 ML, BID
     Route: 048
     Dates: start: 20121109
  7. GABAPENTIN. [Concomitant]
     Active Substance: GABAPENTIN
     Dosage: 250MG/5ML, 3ML, TID
     Route: 048
     Dates: start: 20121109
  8. OFNIJ [Concomitant]
     Dosage: 1/2 TAB IN AM, 1 TAB IN PM
     Route: 048
     Dates: start: 20121109
  9. ZAVESCA [Suspect]
     Active Substance: MIGLUSTAT
     Dosage: 200 MG, QID
     Route: 048
  10. ALBUTEROL. [Concomitant]
     Active Substance: ALBUTEROL
     Dosage: 0.63 MG/3ML, NEB, Q3HR
     Route: 065
  11. ZAVESCA [Suspect]
     Active Substance: MIGLUSTAT
     Indication: LIPIDOSIS
     Dosage: 100 MG, QID
     Route: 048
     Dates: start: 20121114
  12. CLONAZEPAM. [Concomitant]
     Active Substance: CLONAZEPAM
     Dosage: 0.125 MG, BID
     Dates: start: 20121109
  13. PREVACID [Concomitant]
     Active Substance: LANSOPRAZOLE
     Dosage: 15 MG
     Route: 048
     Dates: start: 20121109
  14. VIMPAT [Concomitant]
     Active Substance: LACOSAMIDE
     Dosage: 10 MG/ML, 15 ML, BID
     Route: 048
     Dates: start: 20180703

REACTIONS (4)
  - Diarrhoea [Recovered/Resolved]
  - Vomiting [Unknown]
  - Respiratory tract infection [Recovered/Resolved]
  - Gastrointestinal disorder [Unknown]
